FAERS Safety Report 6701137-4 (Version None)
Quarter: 2010Q2

REPORT INFORMATION
  Report Type: 
  Country: None (occurrence: None)
  Receive Date: 20100428
  Receipt Date: 20100428
  Transmission Date: 20101027
  Serious: No
  Sender: FDA-Public Use
  Company Number: None

PATIENT
  Age: 52 Year
  Sex: Female

DRUGS (1)
  1. GABAPENTIN [Suspect]
     Dosage: TAKE 3 TABLETS AT BEDTIME
     Dates: start: 20091214

REACTIONS (3)
  - DYSPHAGIA [None]
  - PRODUCT COATING ISSUE [None]
  - TABLET ISSUE [None]
